FAERS Safety Report 5876439-4 (Version None)
Quarter: 2008Q3

REPORT INFORMATION
  Report Type: 
  Country: None (occurrence: None)
  Receive Date: 20080910
  Receipt Date: 20080903
  Transmission Date: 20090109
  Serious: Yes (Hospitalization)
  Sender: FDA-Public Use
  Company Number: US-WATSON-2008-05291

PATIENT
  Age: 18 Year
  Sex: Female

DRUGS (1)
  1. LOW-OGESTREL 0.3/30-28 (WATSON LABORATORIES) [Suspect]
     Indication: DRUG USE FOR UNKNOWN INDICATION
     Dosage: UNK
     Route: 048
     Dates: start: 20080301

REACTIONS (4)
  - CEREBRAL VENOUS THROMBOSIS [None]
  - CONVULSION [None]
  - HEADACHE [None]
  - INSOMNIA [None]
